FAERS Safety Report 12302159 (Version 1)
Quarter: 2016Q2

REPORT INFORMATION
  Report Type: Spontaneous
  Country: US (occurrence: US)
  Receive Date: 20160425
  Receipt Date: 20160425
  Transmission Date: 20160815
  Serious: Yes (Disabling)
  Sender: FDA-Public Use
  Company Number: US-SA-2016SA077385

PATIENT
  Sex: Male

DRUGS (3)
  1. LANTUS SOLOSTAR [Suspect]
     Active Substance: INSULIN GLARGINE
     Indication: TYPE 2 DIABETES MELLITUS
     Dosage: DOSE:80 UNIT(S)
     Route: 065
  2. LYRICA [Concomitant]
     Active Substance: PREGABALIN
     Indication: PAIN IN EXTREMITY
  3. SOLOSTAR [Concomitant]
     Active Substance: DEVICE

REACTIONS (3)
  - Condition aggravated [Unknown]
  - Weight decreased [Unknown]
  - Hereditary motor and sensory neuropathy [Unknown]
